FAERS Safety Report 22298766 (Version 1)
Quarter: 2023Q2

REPORT INFORMATION
  Report Type: Spontaneous
  Country: US (occurrence: US)
  Receive Date: 20230509
  Receipt Date: 20230509
  Transmission Date: 20230721
  Serious: Yes (Disabling)
  Sender: FDA-Public Use
  Company Number: US-PFIZER INC-202300179933

PATIENT
  Age: 79 Year
  Sex: Female
  Weight: 79.38 kg

DRUGS (2)
  1. XELJANZ [Suspect]
     Active Substance: TOFACITINIB CITRATE
     Indication: Rheumatoid arthritis
     Dosage: HAS BEEN A FEW YEARS
  2. XELJANZ [Suspect]
     Active Substance: TOFACITINIB CITRATE
     Dosage: 5 MG (TAKING ONE XELJANZ 5MG TABLET IN MORNING AND NOT TAKING ONE XELJANZ 5MG TABLET AT NIGHT)

REACTIONS (2)
  - Pain [Unknown]
  - Intentional product misuse [Unknown]
